FAERS Safety Report 8926551 (Version 1)
Quarter: 2012Q4

REPORT INFORMATION
  Report Type: 
  Country: US (occurrence: US)
  Receive Date: 20121127
  Receipt Date: 20121127
  Transmission Date: 20130627
  Serious: Yes (Other)
  Sender: FDA-Public Use
  Company Number: US-ELI_LILLY_AND_COMPANY-US201211006825

PATIENT
  Age: 40 Year
  Sex: Female

DRUGS (1)
  1. HUMULIN 30% REGULAR, 70% NPH [Suspect]
     Indication: DIABETES MELLITUS
     Dosage: UNK, unknown

REACTIONS (2)
  - Emergency care [Unknown]
  - Menstrual disorder [Unknown]
